FAERS Safety Report 15447906 (Version 1)
Quarter: 2018Q3

REPORT INFORMATION
  Report Type: Spontaneous
  Country: VN (occurrence: VN)
  Receive Date: 20180928
  Receipt Date: 20180928
  Transmission Date: 20181010
  Serious: Yes (Death, Other)
  Sender: FDA-Public Use
  Company Number: VN-BAYER-2018-177531

PATIENT

DRUGS (1)
  1. NEXAVAR [Suspect]
     Active Substance: SORAFENIB
     Indication: HEPATOCELLULAR CARCINOMA
     Dosage: UNK
     Route: 048
     Dates: start: 201310, end: 201704

REACTIONS (6)
  - Metastasis [None]
  - Palmar-plantar erythrodysaesthesia syndrome [None]
  - Hepatectomy [None]
  - Hepatocellular carcinoma [None]
  - Hepatic failure [Fatal]
  - Drug effect incomplete [Recovered/Resolved]

NARRATIVE: CASE EVENT DATE: 2017
